FAERS Safety Report 8006617-X (Version None)
Quarter: 2011Q4

REPORT INFORMATION
  Report Type: 
  Country: None (occurrence: None)
  Receive Date: 20111130
  Receipt Date: 20111121
  Transmission Date: 20120403
  Serious: Yes (Hospitalization, Other)
  Sender: FDA-Public Use
  Company Number: 18673

PATIENT
  Sex: Female
  Weight: 245 kg

DRUGS (18)
  1. NEURONTIN [Concomitant]
  2. LIVALO (PITASVASATIN) [Concomitant]
  3. MIRALAX [Concomitant]
  4. CATAPRES TTS (CLONODINE) [Concomitant]
  5. NORVASC [Concomitant]
  6. HYDROCHLOROTHIAZIDE [Concomitant]
  7. FLONASE [Concomitant]
  8. LORAZEPAM [Concomitant]
  9. LANTUS 24U HS (INSULIN GLARGINE [RDNA ORIGIN]) [Concomitant]
  10. VITAMIN D 4000U [Concomitant]
  11. VICODIN (ACETAMINOPHEN AND HYDROCODONE) [Concomitant]
  12. SYNTHYROID (LEVOTHYROXINE SODIUM) [Concomitant]
  13. MELOXICAM [Concomitant]
  14. REMERON (MIRLAZAPINE) [Concomitant]
  15. GLASSIA [Suspect]
     Indication: ALPHA-1 ANTI-TRYPSIN DECREASED
     Dosage: 6840MG, IV, WEEKLY
     Dates: start: 20110120, end: 20110720
  16. HUMALOG TID (INSULIN LISPRO INJECTION) [Concomitant]
  17. PROAIR (ALBUTEROLSULFATE) [Concomitant]
  18. PREVACID [Concomitant]

REACTIONS (13)
  - WHEEZING [None]
  - OXYGEN SATURATION DECREASED [None]
  - MYALGIA [None]
  - DYSPNOEA [None]
  - MUSCLE SPASMS [None]
  - NAUSEA [None]
  - PYREXIA [None]
  - FEELING COLD [None]
  - BLOOD PRESSURE INCREASED [None]
  - CHILLS [None]
  - TREMOR [None]
  - DEVICE RELATED INFECTION [None]
  - CHEST PAIN [None]
